FAERS Safety Report 13265292 (Version 2)
Quarter: 2017Q1

REPORT INFORMATION
  Report Type: Report from Study
  Country: CO (occurrence: CO)
  Receive Date: 20170223
  Receipt Date: 20170319
  Transmission Date: 20170428
  Serious: Yes (Life-Threatening, Hospitalization, Other)
  Sender: FDA-Public Use
  Company Number: CO-AMGEN-COLSL2017026596

PATIENT
  Age: 47 Year
  Sex: Female

DRUGS (1)
  1. MIMPARA [Suspect]
     Active Substance: CINACALCET HYDROCHLORIDE
     Indication: HYPERPARATHYROIDISM SECONDARY
     Dosage: UNK MG, QD
     Route: 048
     Dates: start: 20160822

REACTIONS (2)
  - Arteriovenous fistula aneurysm [Recovered/Resolved]
  - Aortic rupture [Recovered/Resolved]

NARRATIVE: CASE EVENT DATE: 20161112
